FAERS Safety Report 7331094-1 (Version None)
Quarter: 2011Q1

REPORT INFORMATION
  Report Type: 
  Country: None (occurrence: None)
  Receive Date: 20110304
  Receipt Date: 20110207
  Transmission Date: 20110831
  Serious: No
  Sender: FDA-Public Use
  Company Number: US-B.I. PHARMACEUTICALS,INC./RIDGEFIELD-2011-BP-04512BP

PATIENT
  Age: 82 Year
  Sex: Female

DRUGS (5)
  1. CO Q10 [Concomitant]
     Indication: ROUTINE HEALTH MAINTENANCE
     Route: 048
  2. B-D [Concomitant]
     Indication: ROUTINE HEALTH MAINTENANCE
     Route: 048
  3. MICARDIS HCT [Suspect]
     Indication: HYPERTENSION
     Route: 048
     Dates: start: 20101201
  4. VITAMIN D [Concomitant]
     Indication: ROUTINE HEALTH MAINTENANCE
     Route: 048
  5. MULTI-VITAMIN [Concomitant]
     Indication: ROUTINE HEALTH MAINTENANCE
     Route: 048

REACTIONS (3)
  - BACK PAIN [None]
  - BLOOD PRESSURE DECREASED [None]
  - ARTHRALGIA [None]
